FAERS Safety Report 10254570 (Version 1)
Quarter: 2014Q2

REPORT INFORMATION
  Report Type: Spontaneous
  Country: US (occurrence: US)
  Receive Date: 20140624
  Receipt Date: 20140624
  Transmission Date: 20141212
  Serious: No
  Sender: FDA-Public Use
  Company Number: US-ASTRAZENECA-2014SE40318

PATIENT
  Age: 73 Year
  Sex: Male
  Weight: 125.6 kg

DRUGS (1)
  1. SYMBICORT [Suspect]
     Indication: DYSPNOEA
     Dosage: 160/4.5, 1 PUFF BID
     Route: 055
     Dates: start: 20140609

REACTIONS (3)
  - Burning sensation [Unknown]
  - Headache [Unknown]
  - Off label use [Unknown]
